FAERS Safety Report 20061107 (Version 3)
Quarter: 2022Q2

REPORT INFORMATION
  Report Type: Report from Study
  Country: US (occurrence: None)
  Receive Date: 20211112
  Receipt Date: 20220610
  Transmission Date: 20220721
  Serious: Yes (Hospitalization, Other)
  Sender: FDA-Public Use
  Company Number: US-ROCHE-2950841

PATIENT
  Age: 66 Year
  Sex: Female
  Weight: 55.6 kg

DRUGS (5)
  1. ATEZOLIZUMAB [Suspect]
     Active Substance: ATEZOLIZUMAB
     Indication: Adenocarcinoma of colon
     Dosage: ON 18/NOV/2020, SHE RECEIVED LAST DOSE OF ATEZOLIZUMAB PRIOR TO ONSET OF SERIOUS ADVERSE EVENT.
     Route: 041
     Dates: start: 20200923
  2. OXALIPLATIN [Suspect]
     Active Substance: OXALIPLATIN
     Indication: Adenocarcinoma of colon
     Dosage: ON 18/NOV/2020, SHE RECEIVED LAST DOSE OF OXALIPLATIN PRIOR TO ONSET OF SERIOUS ADVERSE EVENT.
     Route: 042
     Dates: start: 20200923
  3. LEUCOVORIN CALCIUM [Suspect]
     Active Substance: LEUCOVORIN CALCIUM
     Indication: Adenocarcinoma of colon
     Dosage: ON 18/NOV/2020, SHE RECEIVED LAST DOSE OF CALCIUM FOLINATE PRIOR TO ONSET OF SERIOUS ADVERSE EVENT.
     Route: 042
     Dates: start: 20200923
  4. FLUOROURACIL [Suspect]
     Active Substance: FLUOROURACIL
     Indication: Adenocarcinoma of colon
     Dosage: ON 18/NOV/2020, SHE RECEIVED LAST DOSE OF 5-FLUROURACIL PRIOR TO ONSET OF SERIOUS ADVERSE EVENT.
     Route: 040
     Dates: start: 20200923
  5. FLUOROURACIL [Suspect]
     Active Substance: FLUOROURACIL
     Route: 042
     Dates: end: 20201118

REACTIONS (10)
  - Acute kidney injury [Recovering/Resolving]
  - Muscular weakness [Recovering/Resolving]
  - Hemiparesis [Recovering/Resolving]
  - Nausea [Recovering/Resolving]
  - Vomiting [Recovering/Resolving]
  - Dehydration [Recovering/Resolving]
  - Transient ischaemic attack [Recovering/Resolving]
  - Urinary tract infection [Recovering/Resolving]
  - Pleural effusion [Recovering/Resolving]
  - Pneumonia [Unknown]

NARRATIVE: CASE EVENT DATE: 20201130
